FAERS Safety Report 14509127 (Version 1)
Quarter: 2018Q1

REPORT INFORMATION
  Report Type: Spontaneous
  Country: JP (occurrence: JP)
  Receive Date: 20180209
  Receipt Date: 20180209
  Transmission Date: 20180509
  Serious: Yes (Other)
  Sender: FDA-Public Use
  Company Number: JP-SUN PHARMACEUTICAL INDUSTRIES LTD-2018R1-162886

PATIENT
  Age: 72 Year
  Sex: Male

DRUGS (4)
  1. CISPLATIN. [Suspect]
     Active Substance: CISPLATIN
     Indication: LARYNGEAL CANCER STAGE IV
     Dosage: 60 MG/M2 (DAY 1)
     Route: 065
  2. 5-FLUOROURACIL [Suspect]
     Active Substance: FLUOROURACIL
     Indication: LARYNGEAL CANCER STAGE IV
     Dosage: 750 MG/M2  (DAY 5)
     Route: 065
  3. LEVOFLOXACIN. [Concomitant]
     Active Substance: LEVOFLOXACIN
     Indication: INFECTION PROPHYLAXIS
     Route: 065
  4. DOCETAXEL. [Suspect]
     Active Substance: DOCETAXEL
     Indication: LARYNGEAL CANCER STAGE IV
     Dosage: 60 MG/M2 (DAY 1)
     Route: 065

REACTIONS (2)
  - Pneumonia aspiration [Unknown]
  - Febrile neutropenia [Recovering/Resolving]
